FAERS Safety Report 5952257-3 (Version None)
Quarter: 2008Q4

REPORT INFORMATION
  Report Type: 
  Country: None (occurrence: None)
  Receive Date: 20081113
  Receipt Date: 20081103
  Transmission Date: 20090506
  Serious: Yes (Other)
  Sender: FDA-Public Use
  Company Number: US-AVENTIS-200817602US

PATIENT
  Sex: Female

DRUGS (3)
  1. KETEK [Suspect]
     Route: 048
     Dates: start: 20050312
  2. KETEK [Suspect]
     Route: 048
     Dates: start: 20050601
  3. KETEK [Suspect]
     Route: 048
     Dates: start: 20060517

REACTIONS (12)
  - ALANINE AMINOTRANSFERASE [None]
  - ARTHRALGIA [None]
  - ASPARTATE AMINOTRANSFERASE INCREASED [None]
  - BILIARY CIRRHOSIS PRIMARY [None]
  - BLOOD ALKALINE PHOSPHATASE INCREASED [None]
  - BLOOD BILIRUBIN INCREASED [None]
  - FATIGUE [None]
  - HYPERGLYCAEMIA [None]
  - JAUNDICE [None]
  - MUSCLE ATROPHY [None]
  - OEDEMA PERIPHERAL [None]
  - SKIN HYPERPIGMENTATION [None]
